FAERS Safety Report 11300368 (Version 1)
Quarter: 2015Q3

REPORT INFORMATION
  Report Type: Spontaneous
  Country: US (occurrence: US)
  Receive Date: 20150722
  Receipt Date: 20150722
  Transmission Date: 20151125
  Serious: No
  Sender: FDA-Public Use
  Company Number: US-ELI_LILLY_AND_COMPANY-US201310002114

PATIENT
  Age: 58 Year
  Sex: Female

DRUGS (2)
  1. HUMATROPE [Suspect]
     Active Substance: SOMATROPIN
     Indication: HYPOTHALAMO-PITUITARY DISORDER
     Dosage: 0.4 MG, EACH EVENING
     Dates: start: 2005
  2. DESMOPRESSIN [Concomitant]
     Active Substance: DESMOPRESSIN
     Indication: HYPERNATRAEMIA

REACTIONS (20)
  - Urinary hesitation [Unknown]
  - Cataract [Unknown]
  - Decreased appetite [Unknown]
  - Incorrect dose administered [Unknown]
  - Blood urine present [Unknown]
  - Dysuria [Not Recovered/Not Resolved]
  - Malaise [Unknown]
  - Weight decreased [Unknown]
  - Increased appetite [Unknown]
  - Nephrolithiasis [Not Recovered/Not Resolved]
  - Carbon monoxide poisoning [Unknown]
  - Incorrect product storage [Unknown]
  - Ureteritis [Unknown]
  - Visual acuity reduced [Unknown]
  - Apathy [Unknown]
  - Diarrhoea [Recovered/Resolved]
  - Hypovitaminosis [Unknown]
  - Insomnia [Unknown]
  - Vomiting [Recovered/Resolved]
  - Weight increased [Unknown]

NARRATIVE: CASE EVENT DATE: 201211
